FAERS Safety Report 8475125-4 (Version None)
Quarter: 2012Q2

REPORT INFORMATION
  Report Type: 
  Country: None (occurrence: None)
  Receive Date: 20120628
  Receipt Date: 20120621
  Transmission Date: 20120825
  Serious: Yes (Hospitalization)
  Sender: FDA-Public Use
  Company Number: FR-PFIZER INC-2012149318

PATIENT
  Age: 40 Year
  Sex: Female

DRUGS (5)
  1. ASPIRIN [Concomitant]
     Dosage: 75 MG, 1X/DAY
     Route: 048
  2. ATORVASTATIN [Suspect]
     Dosage: 10 MG (1 DF) DAILY
     Route: 048
     Dates: end: 20120430
  3. ATACAND [Concomitant]
     Dosage: 8 MG, DAILY
     Route: 048
  4. DESOGESTREL AND ETHINYL ESTRADIOL [Suspect]
     Dosage: 0.075 MG (1 TABLET) DAILY
     Route: 048
     Dates: end: 20120430
  5. SECTRAL [Concomitant]
     Dosage: 200 MG, DAILY
     Route: 048

REACTIONS (4)
  - HEPATITIS [None]
  - CHOLESTASIS [None]
  - OCULAR ICTERUS [None]
  - CYTOLYTIC HEPATITIS [None]
